FAERS Safety Report 6381715-5 (Version None)
Quarter: 2009Q3

REPORT INFORMATION
  Report Type: 
  Country: None (occurrence: None)
  Receive Date: 20090930
  Receipt Date: 20090918
  Transmission Date: 20100115
  Serious: Yes (Other)
  Sender: FDA-Public Use
  Company Number: PHHY2009CA39125

PATIENT
  Sex: Male

DRUGS (13)
  1. CLOZARIL [Suspect]
     Indication: SCHIZOPHRENIA, PARANOID TYPE
     Dosage: UNK
     Dates: start: 20060523
  2. CLOZARIL [Suspect]
     Dosage: 100 AM AND 450 QHS
  3. EFFEXOR [Concomitant]
  4. EPIVAL [Concomitant]
     Indication: EPILEPSY
  5. BLEOMYCIN SULFATE [Concomitant]
     Dosage: UNK
     Dates: start: 20090831
  6. CISPLATIN [Concomitant]
     Dosage: UNK
     Dates: start: 20090831
  7. ETOPOSIDE [Concomitant]
     Dosage: UNK
     Dates: start: 20090831
  8. ZOFRAN [Concomitant]
  9. DECADRON [Concomitant]
     Dosage: UNK
     Dates: start: 20090831
  10. STEMETIL [Concomitant]
     Dosage: UNK
     Dates: start: 20090831
  11. LASIX [Concomitant]
     Dosage: UNK
     Dates: start: 20090831
  12. VENLAFAXINE [Concomitant]
  13. DIVALPROEX SODIUM [Suspect]
     Dosage: 250 AM AND 1000 HS

REACTIONS (8)
  - EOSINOPHIL COUNT DECREASED [None]
  - HAEMATOCRIT DECREASED [None]
  - LEUKOPENIA [None]
  - LYMPHOCYTOSIS [None]
  - NEUTROPENIA [None]
  - PLATELET COUNT DECREASED [None]
  - TESTICULAR OPERATION [None]
  - TESTIS CANCER [None]
